FAERS Safety Report 5567170-3 (Version None)
Quarter: 2007Q4

REPORT INFORMATION
  Report Type: 
  Country: None (occurrence: None)
  Receive Date: 20071219
  Receipt Date: 20071212
  Transmission Date: 20080405
  Serious: Yes (Hospitalization, Other)
  Sender: FDA-Public Use
  Company Number: JP-ELI_LILLY_AND_COMPANY-JP200705006863

PATIENT
  Age: 58 Year
  Sex: Female

DRUGS (1)
  1. HUMALOG [Suspect]
     Indication: DIABETES MELLITUS
     Dosage: 30 IU, DAILY (1/D)
     Route: 058
     Dates: start: 20061220, end: 20070516

REACTIONS (4)
  - ANTI-INSULIN ANTIBODY INCREASED [None]
  - BLADDER PERFORATION [None]
  - HYPERGLYCAEMIA [None]
  - HYPOGLYCAEMIA [None]
